FAERS Safety Report 19808891 (Version 1)
Quarter: 2021Q3

REPORT INFORMATION
  Report Type: Spontaneous
  Country: US (occurrence: US)
  Receive Date: 20210908
  Receipt Date: 20210908
  Transmission Date: 20211014
  Serious: Yes (Hospitalization, Other)
  Sender: FDA-Public Use
  Company Number: US-009507513-2109USA001302

PATIENT
  Sex: Female

DRUGS (3)
  1. LENVATINIB MESYLATE [Suspect]
     Active Substance: LENVATINIB MESYLATE
     Dosage: 10 MILLIGRAM, QD
     Route: 048
     Dates: start: 20210822
  2. KEYTRUDA [Suspect]
     Active Substance: PEMBROLIZUMAB
     Dosage: UNK
  3. LENVATINIB MESYLATE [Suspect]
     Active Substance: LENVATINIB MESYLATE
     Indication: OVARIAN CANCER
     Dosage: 20 MILLIGRAM, QD
     Route: 048
     Dates: start: 20210614, end: 20210822

REACTIONS (4)
  - Splenitis [Unknown]
  - Cholecystitis [Unknown]
  - Brain oedema [Unknown]
  - Gastrointestinal inflammation [Unknown]
